FAERS Safety Report 13932383 (Version 2)
Quarter: 2017Q3

REPORT INFORMATION
  Report Type: Report from Study
  Country: JP (occurrence: JP)
  Receive Date: 20170904
  Receipt Date: 20170925
  Transmission Date: 20171127
  Serious: Yes (Other)
  Sender: FDA-Public Use
  Company Number: JP-ALXN-A201708177AA

PATIENT
  Age: 37 Year
  Sex: Female
  Weight: 42 kg

DRUGS (11)
  1. SOLIRIS [Suspect]
     Active Substance: ECULIZUMAB
     Indication: HAEMOLYTIC URAEMIC SYNDROME
     Dosage: 900 MG, UNK
     Route: 042
     Dates: start: 20170410
  2. GABEXATE MESILATE [Concomitant]
     Active Substance: GABEXATE MESYLATE
     Indication: THROMBOTIC MICROANGIOPATHY
     Dosage: 1500 MG, QD
     Route: 041
     Dates: start: 20170322
  3. NEUART [Concomitant]
     Active Substance: ANTITHROMBIN III HUMAN
     Indication: THROMBOTIC MICROANGIOPATHY
     Dosage: 1500 IU, QD
     Route: 041
     Dates: start: 20170323, end: 20170325
  4. WYSTAL [Concomitant]
     Active Substance: CEFOPERAZONE SODIUM\SULBACTAM SODIUM
     Indication: THROMBOTIC MICROANGIOPATHY
     Dosage: 1 G, QD
     Route: 041
     Dates: start: 20170318, end: 20170319
  5. MEROPENEM. [Concomitant]
     Active Substance: MEROPENEM
     Indication: THROMBOTIC MICROANGIOPATHY
     Dosage: 0.5 G, QD
     Route: 041
     Dates: start: 20170322, end: 20170327
  6. MIYA-BM [Concomitant]
     Active Substance: CLOSTRIDIUM BUTYRICUM SPORES STRAIN M-55
     Indication: THROMBOTIC MICROANGIOPATHY
     Dosage: 1 DF, TID
     Route: 048
     Dates: start: 20170319
  7. RECOMODULIN [Concomitant]
     Active Substance: THROMBOMODULIN ALFA
     Indication: THROMBOTIC MICROANGIOPATHY
     Dosage: 5200 IU, QD
     Route: 041
     Dates: start: 20170318, end: 20170322
  8. STRONG NEO-MINOPHAGEN C [Concomitant]
     Active Substance: AMMONIUM GLYCYRRHIZATE\CYSTEINE HYDROCHLORIDE\GLYCINE
     Dosage: 80 ML, QD
     Route: 042
     Dates: start: 20170405
  9. WYSTAL [Concomitant]
     Active Substance: CEFOPERAZONE SODIUM\SULBACTAM SODIUM
     Dosage: 4 G, QD
     Route: 041
     Dates: start: 20170320, end: 20170321
  10. STRONG NEO-MINOPHAGEN C [Concomitant]
     Active Substance: AMMONIUM GLYCYRRHIZATE\CYSTEINE HYDROCHLORIDE\GLYCINE
     Indication: LIVER DISORDER
     Dosage: 100 ML, QD
     Route: 042
     Dates: start: 20170318, end: 20170404
  11. SOL-MELCORT [Concomitant]
     Active Substance: METHYLPREDNISOLONE SODIUM SUCCINATE
     Indication: THROMBOTIC MICROANGIOPATHY
     Dosage: 1 G, QD
     Route: 041
     Dates: start: 20170319, end: 20170321

REACTIONS (5)
  - Condition aggravated [Unknown]
  - Platelet count decreased [Unknown]
  - Haemolytic anaemia [Unknown]
  - Pyrexia [Not Recovered/Not Resolved]
  - Cerebral infarction [Unknown]

NARRATIVE: CASE EVENT DATE: 201707
